FAERS Safety Report 6461902-8 (Version None)
Quarter: 2009Q4

REPORT INFORMATION
  Report Type: 
  Country: None (occurrence: None)
  Receive Date: 20091130
  Receipt Date: 20091124
  Transmission Date: 20100525
  Serious: Yes (Other)
  Sender: FDA-Public Use
  Company Number: PHHY2009BE46055

PATIENT
  Age: 45 Year
  Sex: Female

DRUGS (2)
  1. LAMISIL [Suspect]
     Dosage: 250 MG FOR 14 DAYS
     Route: 048
  2. VENLAFAXINE [Interacting]
     Dosage: 150 MG
     Route: 048

REACTIONS (2)
  - DIPLOPIA [None]
  - DRUG INTERACTION [None]
